FAERS Safety Report 15320865 (Version 1)
Quarter: 2018Q3

REPORT INFORMATION
  Report Type: Spontaneous
  Country: US (occurrence: US)
  Receive Date: 20180821
  Receipt Date: 20180821
  Transmission Date: 20181010
  Serious: Yes (Other)
  Sender: FDA-Public Use
  Company Number: None

PATIENT
  Age: 65 Year
  Sex: Female
  Weight: 65.25 kg

DRUGS (6)
  1. REPATHA [Suspect]
     Active Substance: EVOLOCUMAB
     Indication: BLOOD CHOLESTEROL INCREASED
     Dosage: ?          QUANTITY:1 INJECTION(S);OTHER FREQUENCY:EVERY 2 WEEKS;?
     Route: 030
     Dates: start: 20170120, end: 20180413
  2. VITAMIN C [Concomitant]
     Active Substance: ASCORBIC ACID
  3. INSULIN [Concomitant]
     Active Substance: INSULIN NOS
  4. VITAMIN B [Concomitant]
     Active Substance: VITAMIN B
  5. VITAMIN D [Concomitant]
     Active Substance: CHOLECALCIFEROL
  6. BABY ASPIRIN [Concomitant]
     Active Substance: ASPIRIN

REACTIONS (4)
  - Pain in extremity [None]
  - Headache [None]
  - Rhinorrhoea [None]
  - Influenza like illness [None]

NARRATIVE: CASE EVENT DATE: 20170401
